FAERS Safety Report 16161726 (Version 1)
Quarter: 2019Q2

REPORT INFORMATION
  Report Type: Spontaneous
  Country: US (occurrence: US)
  Receive Date: 20190405
  Receipt Date: 20190405
  Transmission Date: 20190711
  Serious: No
  Sender: FDA-Public Use
  Company Number: US-PFIZER INC-2019139994

PATIENT
  Age: 63 Year
  Sex: Female
  Weight: 70.76 kg

DRUGS (2)
  1. GABAPENTIN. [Suspect]
     Active Substance: GABAPENTIN
     Indication: NEUROPATHY PERIPHERAL
     Dosage: 700 MG, DAILY (300 MG IN MORNING AND 400 MG AT NIGHT)
     Route: 048
     Dates: start: 201710
  2. GABAPENTIN. [Suspect]
     Active Substance: GABAPENTIN
     Dosage: UNK (DOSE WAS INCREASED)

REACTIONS (4)
  - Therapeutic product effect incomplete [Unknown]
  - Weight increased [Not Recovered/Not Resolved]
  - Product use in unapproved indication [Unknown]
  - Stomatitis [Not Recovered/Not Resolved]

NARRATIVE: CASE EVENT DATE: 201710
